FAERS Safety Report 18757372 (Version 1)
Quarter: 2021Q1

REPORT INFORMATION
  Report Type: Spontaneous
  Country: GB (occurrence: GB)
  Receive Date: 20210119
  Receipt Date: 20210119
  Transmission Date: 20210419
  Serious: Yes (Hospitalization, Other)
  Sender: FDA-Public Use
  Company Number: GB-MYLANLABS-2021M1002436

PATIENT
  Age: 84 Year
  Sex: Male

DRUGS (17)
  1. ATORVASTATIN [Concomitant]
     Active Substance: ATORVASTATIN
     Indication: PROPHYLAXIS
     Dosage: UNK (ONE TO BE TAKEN EACH DAY 28 )
  2. CARBAMAZEPINE. [Suspect]
     Active Substance: CARBAMAZEPINE
     Indication: TRIGEMINAL NEURALGIA
     Dosage: A DAY 56 TABLET
  3. CLOPIDOGREL [Concomitant]
     Active Substance: CLOPIDOGREL BISULFATE
     Indication: LACUNAR INFARCTION
     Dosage: 75MG TABLETS ONE TO BE TAKEN EACH DAY 28 TABLET
  4. DOXAZOSIN [Concomitant]
     Active Substance: DOXAZOSIN MESYLATE
     Dosage: 4 MILLIGRAM, QD
  5. FOSTAIR [Concomitant]
     Active Substance: BECLOMETHASONE\FORMOTEROL
     Dosage: UNK UNK, BID (100MICROGRAMS/DOSE / 6MICROGRAMS/DOSE INHALER )
  6. FULTIUM D3 [Concomitant]
     Active Substance: CHOLECALCIFEROL
     Dosage: 20,000UNIT CAPSULES (INTERNIS PHARMACEUTICALS LTD) ONE CAPSULE PER MONTH DUE IN APPROX 2 WEEKS
  7. COLECALCIFEROL [Concomitant]
     Active Substance: CHOLECALCIFEROL
     Dosage: UNK
  8. MOMETASONE [Concomitant]
     Active Substance: MOMETASONE
     Indication: ESSENTIAL HYPERTENSION
     Dosage: UNK UNK, QD (TWO SPRAYS TO BE USED IN EACH NOSTRIL ONCE A DAY)
  9. SALBUTAMOL [Concomitant]
     Active Substance: ALBUTEROL
     Dosage: UNK (ONE OR TWO PUFFS FOUR TIMES A DAY AS REQUIRED)
  10. DOXAZOSIN [Concomitant]
     Active Substance: DOXAZOSIN MESYLATE
     Indication: ESSENTIAL HYPERTENSION
     Dosage: ONE TO BE TAKEN EACH DAY 28 TABLET
  11. SPIRIVA RESPIMAT [Concomitant]
     Active Substance: TIOTROPIUM BROMIDE
     Dosage: TWO PUFFS TO BE INHALED ONCE DAILY
  12. FELODIPINE. [Concomitant]
     Active Substance: FELODIPINE
     Dosage: 10 MILLIGRAM, QD
  13. VALPROIC ACID. [Suspect]
     Active Substance: VALPROIC ACID
     Indication: TRIGEMINAL NEURALGIA
     Dosage: 300MG EVERY OTHER WEEK
  14. FOLIC ACID. [Concomitant]
     Active Substance: FOLIC ACID
     Dosage: 5MG TABLETS ONE TO BE TAKEN EACH DAY FOR 4 MONTHS
  15. GABAPENTIN. [Concomitant]
     Active Substance: GABAPENTIN
     Indication: TRIGEMINAL NEURALGIA
     Dosage: UNK UNK, TID (TAKE 4 TABS IN THE MORNING AND 4 AT LUNCHTIME AND 4 AT BEDTIME)
  16. MACROGOL [Concomitant]
     Active Substance: POLYETHYLENE GLYCOLS
     Indication: LACUNAR INFARCTION
     Dosage: NPF SUGAR FREE ONE SACHET TO BE TAKEN TWICE A DAY
  17. SENNA                              /00142201/ [Concomitant]
     Active Substance: SENNA LEAF
     Indication: LACUNAR INFARCTION
     Dosage: UNK

REACTIONS (1)
  - Inappropriate antidiuretic hormone secretion [Unknown]
